FAERS Safety Report 6470611-0 (Version None)
Quarter: 2009Q4

REPORT INFORMATION
  Report Type: 
  Country: None (occurrence: None)
  Receive Date: 20091203
  Receipt Date: 20090506
  Transmission Date: 20100525
  Serious: No
  Sender: FDA-Public Use
  Company Number: US-ABBOTT-09P-163-0502417-00

PATIENT
  Sex: Female
  Weight: 85.806 kg

DRUGS (2)
  1. MERIDIA [Suspect]
     Indication: WEIGHT DECREASED
     Dates: start: 20080701, end: 20080701
  2. PRILOSEC [Concomitant]
     Indication: DRUG USE FOR UNKNOWN INDICATION

REACTIONS (6)
  - ABDOMINAL DISTENSION [None]
  - CONSTIPATION [None]
  - HAEMORRHOIDS [None]
  - MALAISE [None]
  - RASH [None]
  - WEIGHT INCREASED [None]
